FAERS Safety Report 5692236-7 (Version None)
Quarter: 2008Q2

REPORT INFORMATION
  Report Type: 
  Country: None (occurrence: None)
  Receive Date: 20080402
  Receipt Date: 20080318
  Transmission Date: 20081010
  Serious: Yes (Death)
  Sender: FDA-Public Use
  Company Number: US-PFIZER INC-2008020828

PATIENT
  Age: 48 Year
  Sex: Male

DRUGS (4)
  1. XANAX [Suspect]
     Indication: DRUG ABUSE
  2. MORPHINE SULFATE [Suspect]
     Indication: DRUG ABUSE
  3. ROXICODONE [Suspect]
     Indication: DRUG ABUSE
  4. CODEINE SUL TAB [Suspect]
     Indication: DRUG ABUSE

REACTIONS (1)
  - MULTIPLE DRUG OVERDOSE ACCIDENTAL [None]
